FAERS Safety Report 4466322-3 (Version None)
Quarter: 2004Q4

REPORT INFORMATION
  Report Type: 
  Country: None (occurrence: None)
  Receive Date: 20041005
  Receipt Date: 20041004
  Transmission Date: 20050328
  Serious: Yes (Other)
  Sender: FDA-Public Use
  Company Number: US-GLAXOSMITHKLINE-A0528408A

PATIENT
  Age: 38 Year
  Sex: Male

DRUGS (2)
  1. VALTREX [Suspect]
     Route: 048
  2. STEROIDS [Concomitant]
     Indication: DRUG USE FOR UNKNOWN INDICATION
     Route: 061

REACTIONS (6)
  - AGGRESSION [None]
  - ANXIETY [None]
  - DRUG INEFFECTIVE [None]
  - DYSPEPSIA [None]
  - MANIA [None]
  - MENTAL IMPAIRMENT [None]
